FAERS Safety Report 6496166-2 (Version None)
Quarter: 2009Q4

REPORT INFORMATION
  Report Type: 
  Country: None (occurrence: None)
  Receive Date: 20091214
  Receipt Date: 20091009
  Transmission Date: 20100525
  Serious: No
  Sender: FDA-Public Use
  Company Number: US-BRISTOL-MYERS SQUIBB COMPANY-14813612

PATIENT
  Age: 54 Year
  Sex: Male
  Weight: 105 kg

DRUGS (5)
  1. ABILIFY [Suspect]
     Indication: BIPOLAR DISORDER
     Dosage: INITIAL DOSE 20 MG THEN INCREASED TO 35MG APPX 8 MONTHS AGO DURATION :2 YEARS AGO
  2. CARBAMAZEPINE [Concomitant]
  3. WELLBUTRIN XL [Concomitant]
  4. TESTOSTERONE [Concomitant]
     Route: 062
  5. MINOXIDIL [Concomitant]
     Route: 061

REACTIONS (2)
  - URINE OUTPUT INCREASED [None]
  - WEIGHT INCREASED [None]
